FAERS Safety Report 9862832 (Version 4)
Quarter: 2014Q2

REPORT INFORMATION
  Report Type: Spontaneous
  Country: US (occurrence: US)
  Receive Date: 20140203
  Receipt Date: 20140506
  Transmission Date: 20141212
  Serious: Yes (Hospitalization, Other)
  Sender: FDA-Public Use
  Company Number: US-BAXTER-2014BAX004347

PATIENT
  Sex: Female

DRUGS (4)
  1. DIANEAL LOW CALCIUM [Suspect]
     Indication: PERITONEAL DIALYSIS
     Route: 033
     Dates: start: 20130827, end: 201401
  2. DIANEAL LOW CALCIUM [Suspect]
     Route: 033
     Dates: start: 201401
  3. EXTRANEAL [Suspect]
     Indication: PERITONEAL DIALYSIS
     Route: 033
     Dates: start: 20130827, end: 201401
  4. EXTRANEAL [Suspect]
     Route: 033
     Dates: start: 201401

REACTIONS (5)
  - Coronary artery occlusion [Recovering/Resolving]
  - Myocardial infarction [Recovered/Resolved]
  - Sepsis [Recovering/Resolving]
  - Chest pain [Recovered/Resolved]
  - Device related infection [Unknown]
